FAERS Safety Report 8014281-9 (Version None)
Quarter: 2011Q4

REPORT INFORMATION
  Report Type: 
  Country: None (occurrence: None)
  Receive Date: 20111229
  Receipt Date: 20111222
  Transmission Date: 20120403
  Serious: Yes (Other)
  Sender: FDA-Public Use
  Company Number: JP-GLAXOSMITHKLINE-B0771437A

PATIENT
  Sex: Female

DRUGS (1)
  1. SERETIDE (50MCG/100MCG) [Suspect]
     Indication: PRODUCT USED FOR UNKNOWN INDICATION
     Dosage: 200MCG PER DAY
     Route: 055

REACTIONS (3)
  - ASTHMA [None]
  - SENSATION OF FOREIGN BODY [None]
  - NAUSEA [None]
